FAERS Safety Report 9474031 (Version 1)
Quarter: 2013Q3

REPORT INFORMATION
  Report Type: Spontaneous
  Country: BR (occurrence: BR)
  Receive Date: 20130823
  Receipt Date: 20130823
  Transmission Date: 20140515
  Serious: Yes (Other)
  Sender: FDA-Public Use
  Company Number: BR-SANOFI-AVENTIS-2013SA083525

PATIENT
  Age: 30 Year
  Sex: Male
  Weight: 62 kg

DRUGS (5)
  1. LANTUS [Suspect]
     Indication: TYPE 1 DIABETES MELLITUS
     Route: 058
     Dates: start: 2006
  2. PREDNISONE [Concomitant]
     Indication: TRANSPLANT
     Route: 048
  3. PROGRAF [Concomitant]
     Indication: TRANSPLANT
     Dosage: STRENGTH: 1MG
     Route: 048
  4. MYFORTIC [Concomitant]
     Indication: TRANSPLANT
     Dosage: STRENGTH: 360MG
     Route: 048
  5. DEVICE NOS [Concomitant]
     Indication: DEVICE THERAPY

REACTIONS (2)
  - Renal transplant [Recovered/Resolved]
  - Pancreas transplant [Recovered/Resolved]
